FAERS Safety Report 11055575 (Version 2)
Quarter: 2015Q2

REPORT INFORMATION
  Report Type: Spontaneous
  Country: CN (occurrence: CN)
  Receive Date: 20150422
  Receipt Date: 20150505
  Transmission Date: 20150821
  Serious: Yes (Hospitalization)
  Sender: FDA-Public Use
  Company Number: CN-009507513-1504CHN017122

PATIENT
  Age: 70 Year
  Sex: Female

DRUGS (2)
  1. DIPROSPAN [Suspect]
     Active Substance: BETAMETHASONE DIPROPIONATE\BETAMETHASONE SODIUM PHOSPHATE
     Indication: BACK PAIN
     Dosage: 5 MG,FREQUENCY: UNK, FLUOROSCOPICALLY GUIDED L3/4AND L5/S1 JOINT INJECTION BILATERALLY
  2. BUPIVACAINE [Concomitant]
     Active Substance: BUPIVACAINE
     Indication: BACK PAIN
     Dosage: 5 ML, FERQUENCY: UNK, FLUOROSCOPICALLY GUIDED L3/4 AND L5/S1 JOINT INJECTION BILATERALLY

REACTIONS (2)
  - Headache [Recovering/Resolving]
  - Leukocytosis [Recovering/Resolving]
